FAERS Safety Report 6257087-3 (Version None)
Quarter: 2009Q3

REPORT INFORMATION
  Report Type: 
  Country: None (occurrence: None)
  Receive Date: 20090706
  Receipt Date: 20090615
  Transmission Date: 20100115
  Serious: Yes (Hospitalization)
  Sender: FDA-Public Use
  Company Number: B0580042A

PATIENT
  Age: 40 Year
  Sex: Female

DRUGS (1)
  1. DILATREND [Suspect]
     Indication: DRUG USE FOR UNKNOWN INDICATION
     Dosage: 700MG PER DAY
     Route: 065

REACTIONS (5)
  - ELECTROCARDIOGRAM QT PROLONGED [None]
  - HYPOTENSION [None]
  - INTENTIONAL OVERDOSE [None]
  - SINUS BRADYCARDIA [None]
  - VERTIGO [None]
